FAERS Safety Report 19260391 (Version 1)
Quarter: 2021Q2

REPORT INFORMATION
  Report Type: Spontaneous
  Country: DE (occurrence: DE)
  Receive Date: 20210514
  Receipt Date: 20210514
  Transmission Date: 20210717
  Serious: Yes (Hospitalization)
  Sender: FDA-Public Use
  Company Number: DE-ELI_LILLY_AND_COMPANY-DE202105001557

PATIENT
  Sex: Female

DRUGS (4)
  1. EMGALITY [Interacting]
     Active Substance: GALCANEZUMAB-GNLM
     Dosage: 120 MG, MONTHLY (1/M)
     Route: 058
     Dates: start: 201905, end: 20200403
  2. VEDOLIZUMAB [Interacting]
     Active Substance: VEDOLIZUMAB
     Indication: CROHN^S DISEASE
     Dosage: UNK, UNKNOWN
     Route: 065
  3. EMGALITY [Interacting]
     Active Substance: GALCANEZUMAB-GNLM
     Dosage: 120 MG, MONTHLY (1/M)
     Route: 065
     Dates: start: 202005
  4. EMGALITY [Suspect]
     Active Substance: GALCANEZUMAB-GNLM
     Indication: MIGRAINE
     Dosage: 240 MG, SINGLE
     Route: 058
     Dates: start: 201905

REACTIONS (9)
  - Neoplasm [Unknown]
  - Malaise [Unknown]
  - Limb discomfort [Unknown]
  - Blood pressure increased [Unknown]
  - Therapeutic product effect decreased [Unknown]
  - Drug interaction [Unknown]
  - Lipoma [Unknown]
  - Coagulopathy [Unknown]
  - Migraine [Unknown]

NARRATIVE: CASE EVENT DATE: 2020
